FAERS Safety Report 5472998-4 (Version None)
Quarter: 2007Q4

REPORT INFORMATION
  Report Type: 
  Country: None (occurrence: None)
  Receive Date: 20071001
  Receipt Date: 20070319
  Transmission Date: 20080405
  Serious: No
  Sender: FDA-Public Use
  Company Number: US-ASTRAZENECA-2007UW02384

PATIENT
  Age: 56 Year
  Sex: Female
  Weight: 72.6 kg

DRUGS (2)
  1. ARIMIDEX [Suspect]
     Indication: BREAST CANCER STAGE I
     Route: 048
     Dates: start: 20050801
  2. FOSAMAX [Suspect]
     Indication: OSTEOPOROSIS
     Dates: start: 20051101, end: 20060401

REACTIONS (5)
  - ACTIVITIES OF DAILY LIVING IMPAIRED [None]
  - ARTHRALGIA [None]
  - JOINT STIFFNESS [None]
  - PAIN IN EXTREMITY [None]
  - WEIGHT INCREASED [None]
